FAERS Safety Report 19874536 (Version 2)
Quarter: 2024Q4

REPORT INFORMATION
  Report Type: Spontaneous
  Country: US (occurrence: US)
  Receive Date: 20210923
  Receipt Date: 20241211
  Transmission Date: 20250115
  Serious: No
  Sender: PFIZER
  Company Number: US-PFIZER INC-2021805048

PATIENT
  Age: 63 Year
  Sex: Female

DRUGS (1)
  1. IBRANCE [Suspect]
     Active Substance: PALBOCICLIB
     Indication: Breast cancer female
     Dosage: 125 MG, CYCLIC ( DAILY, DAYS 1-21, 7 DAYS OFF)
     Route: 048
     Dates: start: 20191113

REACTIONS (1)
  - Alopecia [Not Recovered/Not Resolved]
